FAERS Safety Report 8141309-8 (Version None)
Quarter: 2012Q1

REPORT INFORMATION
  Report Type: 
  Country: None (occurrence: None)
  Receive Date: 20120216
  Receipt Date: 20120206
  Transmission Date: 20120608
  Serious: Yes (Other)
  Sender: FDA-Public Use
  Company Number: ES-ELI_LILLY_AND_COMPANY-ES201202001710

PATIENT
  Age: 54 Year
  Sex: Female

DRUGS (2)
  1. DULOXETINE HYDROCHLORIDE [Suspect]
     Dosage: 60 MG, QD
     Route: 048
     Dates: start: 20090716
  2. AGOMELATIN [Concomitant]
     Dosage: 25 MG, QD
     Route: 048
     Dates: start: 20111222, end: 20111227

REACTIONS (2)
  - EXTRASYSTOLES [None]
  - PALPITATIONS [None]
